FAERS Safety Report 7867300-4 (Version None)
Quarter: 2011Q4

REPORT INFORMATION
  Report Type: 
  Country: None (occurrence: None)
  Receive Date: 20111028
  Receipt Date: 20111026
  Transmission Date: 20120403
  Serious: Yes (Death)
  Sender: FDA-Public Use
  Company Number: BR-ABBOTT-11P-020-0867913-00

PATIENT
  Sex: Female
  Weight: 80 kg

DRUGS (8)
  1. HYDROCHLOROTHIAZIDE [Concomitant]
     Indication: HYPERTENSION
  2. METHOTREXATE [Concomitant]
     Indication: MUSCULOSKELETAL PAIN
     Route: 048
  3. LEFLUNOMIDE [Concomitant]
     Indication: MUSCULOSKELETAL PAIN
     Route: 048
  4. ENALAPRIL MALEATE [Concomitant]
     Indication: HYPERTENSION
  5. CALCIUM CARBONATE [Concomitant]
     Indication: BONE DISORDER
  6. PREDNISONE [Concomitant]
     Indication: MUSCULOSKELETAL PAIN
  7. ALENDRONATE SODIUM [Concomitant]
     Indication: MUSCULOSKELETAL PAIN
  8. HUMIRA [Suspect]
     Indication: RHEUMATOID ARTHRITIS
     Route: 058
     Dates: start: 20070101, end: 20070101

REACTIONS (6)
  - RHEUMATOID ARTHRITIS [None]
  - MUSCULOSKELETAL PAIN [None]
  - INFECTION [None]
  - SECONDARY IMMUNODEFICIENCY [None]
  - STAPHYLOCOCCAL INFECTION [None]
  - SEPTIC SHOCK [None]
